FAERS Safety Report 19963558 (Version 2)
Quarter: 2021Q4

REPORT INFORMATION
  Report Type: Spontaneous
  Country: TR (occurrence: TR)
  Receive Date: 20211018
  Receipt Date: 20211022
  Transmission Date: 20220303
  Serious: Yes (Other)
  Sender: FDA-Public Use
  Company Number: NVSC2021TR235878

PATIENT
  Age: 73 Year
  Sex: Female

DRUGS (2)
  1. TRILEPTAL [Suspect]
     Active Substance: OXCARBAZEPINE
     Indication: Trigeminal neuralgia
     Dosage: 2X1
     Route: 065
  2. TRILEPTAL [Suspect]
     Active Substance: OXCARBAZEPINE
     Indication: Pain

REACTIONS (6)
  - Dyskinesia [Unknown]
  - Ear pain [Unknown]
  - Off label use [Unknown]
  - Underdose [Unknown]
  - Wrong technique in product usage process [Unknown]
  - Product supply issue [Unknown]
